FAERS Safety Report 7104403-6 (Version None)
Quarter: 2010Q4

REPORT INFORMATION
  Report Type: 
  Country: None (occurrence: None)
  Receive Date: 20101115
  Receipt Date: 20101013
  Transmission Date: 20110411
  Serious: Yes (Other)
  Sender: FDA-Public Use
  Company Number: CO-AMGEN-COLCT2010000879

PATIENT

DRUGS (4)
  1. ETANERCEPT [Suspect]
     Indication: RHEUMATOID ARTHRITIS
     Dosage: 50 MG, Q2WK
     Dates: start: 19980601
  2. IBUPROFEN [Suspect]
     Indication: ARTHRALGIA
     Dosage: AS NEEDED
     Route: 048
  3. IBANDRONATE SODIUM [Concomitant]
     Route: 048
  4. CALCIUM [Concomitant]
     Indication: NUTRITIONAL SUPPORT
     Dosage: UNKNOWN DOSE, TWICE DAILY
     Route: 048

REACTIONS (2)
  - DUPUYTREN'S CONTRACTURE [None]
  - OSTEOPOROSIS [None]
